FAERS Safety Report 7318024-3 (Version None)
Quarter: 2011Q1

REPORT INFORMATION
  Report Type: 
  Country: None (occurrence: None)
  Receive Date: 20110227
  Receipt Date: 20110217
  Transmission Date: 20110831
  Serious: Yes (Life-Threatening, Other)
  Sender: FDA-Public Use
  Company Number: FR-BRISTOL-MYERS SQUIBB COMPANY-15557812

PATIENT
  Age: 84 Year
  Sex: Female

DRUGS (10)
  1. COUMADIN [Suspect]
     Indication: ARRHYTHMIA
     Dates: end: 20100811
  2. CEFTRIAXONE [Suspect]
     Indication: URINARY TRACT INFECTION
     Route: 042
     Dates: start: 20100804
  3. APROVEL [Concomitant]
     Route: 048
  4. CEFIXIME [Concomitant]
     Route: 048
     Dates: start: 20100728, end: 20100803
  5. LASIX [Concomitant]
     Route: 048
  6. DISCOTRINE [Concomitant]
     Dosage: PATCH
     Route: 062
  7. TRIFLUCAN [Suspect]
     Indication: FUNGAL SKIN INFECTION
     Dosage: 1DF=50MG/5ML
     Route: 048
     Dates: start: 20100806, end: 20100809
  8. ECONAZOLE NITRATE [Concomitant]
     Dosage: SANDOZ
     Route: 061
     Dates: start: 20100806, end: 20100809
  9. EQUANIL [Concomitant]
     Route: 048
  10. CORDARONE [Concomitant]
     Route: 048

REACTIONS (5)
  - OVERDOSE [None]
  - URINARY TRACT INFECTION [None]
  - FUNGAL INFECTION [None]
  - DYSPNOEA [None]
  - INTERNATIONAL NORMALISED RATIO INCREASED [None]
